FAERS Safety Report 9457600 (Version 1)
Quarter: 2013Q3

REPORT INFORMATION
  Report Type: Spontaneous
  Country: US (occurrence: US)
  Receive Date: 20130814
  Receipt Date: 20130814
  Transmission Date: 20140515
  Serious: No
  Sender: FDA-Public Use
  Company Number: US-PFIZER INC-2013233101

PATIENT
  Age: 66 Year
  Sex: Female
  Weight: 52.15 kg

DRUGS (2)
  1. PRAZOSIN HCL [Suspect]
     Indication: RAYNAUD^S PHENOMENON
     Dosage: 1 MG, 2X/DAY
     Dates: start: 2012
  2. NORVASC [Concomitant]
     Dosage: UNK

REACTIONS (1)
  - Drug ineffective [Unknown]
